FAERS Safety Report 22342575 (Version 4)
Quarter: 2023Q2

REPORT INFORMATION
  Report Type: Report from Study
  Country: US (occurrence: US)
  Receive Date: 20230519
  Receipt Date: 20230627
  Transmission Date: 20230721
  Serious: Yes (Hospitalization, Other)
  Sender: FDA-Public Use
  Company Number: US-ABBVIE-4770751

PATIENT
  Age: 70 Year
  Sex: Female

DRUGS (2)
  1. HUMIRA [Suspect]
     Active Substance: ADALIMUMAB
     Indication: Product used for unknown indication
     Route: 058
     Dates: start: 20200516
  2. HUMIRA [Suspect]
     Active Substance: ADALIMUMAB
     Route: 058
     Dates: start: 20200616

REACTIONS (17)
  - Cardiac disorder [Recovering/Resolving]
  - Pressure of speech [Unknown]
  - Loss of consciousness [Unknown]
  - Dizziness [Unknown]
  - Asthenia [Recovering/Resolving]
  - Vomiting [Unknown]
  - Enterocolitis haemorrhagic [Unknown]
  - Hypotension [Unknown]
  - Aphasia [Unknown]
  - Wrong technique in product usage process [Unknown]
  - Stent placement [Unknown]
  - Illness [Unknown]
  - Unevaluable event [Unknown]
  - Renal failure [Recovering/Resolving]
  - Coronary artery bypass [Unknown]
  - Anaemia [Recovering/Resolving]
  - Haemorrhage [Recovering/Resolving]

NARRATIVE: CASE EVENT DATE: 20220901
